FAERS Safety Report 23296618 (Version 1)
Quarter: 2023Q4

REPORT INFORMATION
  Report Type: Spontaneous
  Country: US (occurrence: None)
  Receive Date: 20231214
  Receipt Date: 20231214
  Transmission Date: 20240109
  Serious: No
  Sender: FDA-Public Use
  Company Number: 2023A274016

PATIENT

DRUGS (1)
  1. BUDESONIDE\FORMOTEROL [Suspect]
     Active Substance: BUDESONIDE\FORMOTEROL
     Dosage: 80 UG, UNKNOWN UNKNOWN
     Route: 055

REACTIONS (3)
  - Dry mouth [Unknown]
  - Device malfunction [Unknown]
  - Incorrect dose administered by device [Unknown]
